FAERS Safety Report 17898566 (Version 1)
Quarter: 2020Q2

REPORT INFORMATION
  Report Type: Spontaneous
  Country: US (occurrence: US)
  Receive Date: 20200615
  Receipt Date: 20200615
  Transmission Date: 20200714
  Serious: Yes (Death, Other)
  Sender: FDA-Public Use
  Company Number: US-AMNEAL PHARMACEUTICALS-2020-AMRX-01718

PATIENT
  Age: 43 Year
  Sex: Female

DRUGS (3)
  1. NOREPINEPHRINE BITARTRATE. [Suspect]
     Active Substance: NOREPINEPHRINE BITARTRATE
     Indication: HYPOTENSION
     Dosage: UNK
     Route: 065
  2. PROPOFOL. [Suspect]
     Active Substance: PROPOFOL
     Indication: GENERALISED TONIC-CLONIC SEIZURE
     Dosage: 50 MICROGRAM/KILOGRAM, EVERY MIN
     Route: 042
  3. PROPOFOL. [Suspect]
     Active Substance: PROPOFOL
     Dosage: 180 MICROGRAM/KILOGRAM, EVERY MIN
     Route: 042

REACTIONS (3)
  - Lactic acidosis [Fatal]
  - Propofol infusion syndrome [Fatal]
  - Cardiac arrest [Fatal]
